FAERS Safety Report 7162497-6 (Version None)
Quarter: 2010Q4

REPORT INFORMATION
  Report Type: 
  Country: None (occurrence: None)
  Receive Date: 20101215
  Receipt Date: 20091113
  Transmission Date: 20110411
  Serious: Yes (Other)
  Sender: FDA-Public Use
  Company Number: US-PFIZER INC-2008033855

PATIENT
  Sex: Female
  Weight: 45.4 kg

DRUGS (7)
  1. LYRICA [Suspect]
     Indication: FIBROMYALGIA
     Dosage: UNK
     Dates: start: 20070101
  2. SEROQUEL [Suspect]
     Indication: SLEEP DISORDER
  3. SEROQUEL [Suspect]
     Indication: DEPRESSION
  4. CYMBALTA [Concomitant]
  5. WELLBUTRIN XL [Concomitant]
  6. REQUIP [Concomitant]
  7. VICODIN [Concomitant]

REACTIONS (2)
  - FALL [None]
  - LOSS OF CONSCIOUSNESS [None]
